FAERS Safety Report 4651809-0 (Version None)
Quarter: 2005Q2

REPORT INFORMATION
  Report Type: 
  Country: None (occurrence: None)
  Receive Date: 20050504
  Receipt Date: 20040629
  Transmission Date: 20051028
  Serious: Yes (Other)
  Sender: FDA-Public Use
  Company Number: US-GLAXOSMITHKLINE-A0518181A

PATIENT
  Age: 32 Year
  Sex: Female

DRUGS (3)
  1. PAXIL [Suspect]
     Indication: PANIC ATTACK
     Dosage: 10MG PER DAY
     Route: 048
     Dates: start: 20000101, end: 20030101
  2. XANAX [Concomitant]
  3. LEXAPRO [Concomitant]

REACTIONS (12)
  - ANXIETY [None]
  - DEPRESSION [None]
  - DISTURBANCE IN ATTENTION [None]
  - DIZZINESS [None]
  - DRUG WITHDRAWAL SYNDROME [None]
  - HEADACHE [None]
  - IRRITABILITY [None]
  - NAUSEA [None]
  - PAIN [None]
  - PARAESTHESIA [None]
  - PERFORMANCE STATUS DECREASED [None]
  - SUICIDAL IDEATION [None]
